FAERS Safety Report 21440083 (Version 1)
Quarter: 2022Q4

REPORT INFORMATION
  Report Type: Spontaneous
  Country: US (occurrence: US)
  Receive Date: 20221011
  Receipt Date: 20221011
  Transmission Date: 20230112
  Serious: Yes (Other)
  Sender: FDA-Public Use
  Company Number: US-GLAXOSMITHKLINE-US2022142696

PATIENT

DRUGS (2)
  1. BENLYSTA [Suspect]
     Active Substance: BELIMUMAB
     Indication: Product used for unknown indication
     Dosage: UNK, INJ
     Dates: start: 2019
  2. BENLYSTA [Suspect]
     Active Substance: BELIMUMAB
     Dosage: UNK, IV
     Dates: start: 2020

REACTIONS (3)
  - Systemic lupus erythematosus [Not Recovered/Not Resolved]
  - Blindness [Unknown]
  - Visual impairment [Not Recovered/Not Resolved]
